FAERS Safety Report 21289722 (Version 1)
Quarter: 2022Q3

REPORT INFORMATION
  Report Type: Spontaneous
  Country: US (occurrence: US)
  Receive Date: 20220902
  Receipt Date: 20220902
  Transmission Date: 20221026
  Serious: No
  Sender: FDA-Public Use
  Company Number: US-MYLANLABS-2022M1085404

PATIENT
  Sex: Female

DRUGS (4)
  1. FENTANYL TRANSDERMAL SYSTEM [Suspect]
     Active Substance: FENTANYL
     Indication: Complex regional pain syndrome
     Dosage: 50 MILLIGRAM, QH (EVERY 72 HOURS)
     Route: 062
  2. GABAPENTIN [Concomitant]
     Active Substance: GABAPENTIN
     Indication: Complex regional pain syndrome
     Dosage: 300 MILLIGRAM, TID
     Route: 048
  3. HYDROMORPHONE [Concomitant]
     Active Substance: HYDROMORPHONE
     Indication: Complex regional pain syndrome
     Dosage: 4 MILLIGRAM, TID
     Route: 048
  4. CLONIDINE [Interacting]
     Active Substance: CLONIDINE
     Indication: Blood pressure measurement
     Dosage: 0.1 MILLIGRAM, QW
     Route: 065

REACTIONS (4)
  - Insomnia [Unknown]
  - Drug ineffective [Unknown]
  - Drug delivery system issue [Unknown]
  - Product adhesion issue [Unknown]
